FAERS Safety Report 6897760-7 (Version None)
Quarter: 2010Q3

REPORT INFORMATION
  Report Type: 
  Country: None (occurrence: None)
  Receive Date: 20100802
  Receipt Date: 20070716
  Transmission Date: 20110219
  Serious: Yes (Other)
  Sender: FDA-Public Use
  Company Number: US-PFIZER INC-2007058774

PATIENT
  Sex: Female
  Weight: 53.5 kg

DRUGS (3)
  1. LYRICA [Suspect]
     Indication: NEURALGIA
     Dates: start: 20070713
  2. REBIF [Concomitant]
  3. VESICARE [Concomitant]

REACTIONS (1)
  - ASTHENIA [None]
